FAERS Safety Report 17809381 (Version 1)
Quarter: 2020Q2

REPORT INFORMATION
  Report Type: Spontaneous
  Country: CA (occurrence: CA)
  Receive Date: 20200521
  Receipt Date: 20200521
  Transmission Date: 20200714
  Serious: Yes (Other)
  Sender: FDA-Public Use
  Company Number: CA-AUROBINDO-AUR-APL-2020-025011

PATIENT
  Sex: Male

DRUGS (2)
  1. ALEMTUZUMAB [Suspect]
     Active Substance: ALEMTUZUMAB
     Indication: BONE MARROW CONDITIONING REGIMEN
     Dosage: 0.2 MILLIGRAM/KILOGRAM, ONCE A DAY
     Route: 065
  2. MELPHALAN. [Suspect]
     Active Substance: MELPHALAN
     Indication: BONE MARROW CONDITIONING REGIMEN
     Dosage: 140 MILLIGRAM/SQ. METER, CYCLICAL
     Route: 065

REACTIONS (4)
  - Off label use [Recovered/Resolved]
  - Human herpesvirus 6 infection [Recovered/Resolved]
  - Epstein-Barr virus infection [Recovered/Resolved]
  - Hypertension [Recovered/Resolved]
